FAERS Safety Report 5707425-2 (Version None)
Quarter: 2008Q2

REPORT INFORMATION
  Report Type: 
  Country: None (occurrence: None)
  Receive Date: 20080416
  Receipt Date: 20080321
  Transmission Date: 20081010
  Serious: No
  Sender: FDA-Public Use
  Company Number: US-BOEHRINGER INGELHEIM GMBH, GERMANY-2008-BP-04498BP

PATIENT
  Age: 72 Year
  Sex: Female

DRUGS (4)
  1. ZANTAC 150 [Suspect]
     Indication: GASTROOESOPHAGEAL REFLUX DISEASE
     Route: 048
     Dates: start: 20080313
  2. MICARDIS [Concomitant]
  3. DYAZIDE [Concomitant]
  4. ISOSORBIDE DINITRATE [Concomitant]

REACTIONS (3)
  - RASH [None]
  - RASH PRURITIC [None]
  - SKIN BURNING SENSATION [None]
